FAERS Safety Report 5818307-X (Version None)
Quarter: 2008Q3

REPORT INFORMATION
  Report Type: 
  Country: None (occurrence: None)
  Receive Date: 20080722
  Receipt Date: 20060413
  Transmission Date: 20090109
  Serious: Yes (Other)
  Sender: FDA-Public Use
  Company Number: LU-PFIZER INC-2006047993

PATIENT
  Age: 39 Year
  Sex: Male
  Weight: 98 kg

DRUGS (7)
  1. LYRICA [Suspect]
     Indication: NEURALGIA
     Route: 048
  2. NEURONTIN [Suspect]
     Indication: NEURALGIA
     Dosage: TEXT:UNKNOWN-FREQ:UNKNOWN
     Route: 065
  3. SECTRAL [Concomitant]
     Route: 048
  4. ATACAND [Concomitant]
     Route: 048
  5. REDOMEX [Concomitant]
     Route: 048
  6. TRAMADOL HCL [Concomitant]
     Route: 065
  7. ZOLPIDEM TARTRATE [Concomitant]
     Route: 048

REACTIONS (7)
  - ANAEMIA [None]
  - ATRIAL FIBRILLATION [None]
  - DRUG INEFFECTIVE [None]
  - MICROCYTIC ANAEMIA [None]
  - PLATELET DISORDER [None]
  - VENTRICULAR FIBRILLATION [None]
  - WEIGHT DECREASED [None]
